FAERS Safety Report 4429399-7 (Version None)
Quarter: 2004Q3

REPORT INFORMATION
  Report Type: 
  Country: None (occurrence: None)
  Receive Date: 20040818
  Receipt Date: 20040818
  Transmission Date: 20050211
  Serious: Yes (Other)
  Sender: FDA-Public Use
  Company Number: None

PATIENT

DRUGS (1)
  1. BROMOCRIPTIN [Suspect]
     Indication: INTERNATIONAL NORMALISED RATIO
     Dosage: 2.5 MG BID

REACTIONS (1)
  - HEADACHE [None]
